FAERS Safety Report 5777573-X (Version None)
Quarter: 2008Q2

REPORT INFORMATION
  Report Type: 
  Country: None (occurrence: None)
  Receive Date: 20080618
  Receipt Date: 20071116
  Transmission Date: 20081010
  Serious: Yes (Other)
  Sender: FDA-Public Use
  Company Number: IE-PFIZER INC-2007097924

PATIENT
  Sex: Female

DRUGS (1)
  1. CHANTIX [Suspect]
     Route: 048
     Dates: start: 20070101, end: 20070101

REACTIONS (13)
  - BREAST CYST [None]
  - BREAST PAIN [None]
  - EYE PAIN [None]
  - GINGIVITIS [None]
  - HEADACHE [None]
  - LIMB DISCOMFORT [None]
  - MYALGIA [None]
  - NIGHT BLINDNESS [None]
  - PANIC ATTACK [None]
  - PURULENT DISCHARGE [None]
  - RASH [None]
  - VIRAL INFECTION [None]
  - VISION BLURRED [None]
